FAERS Safety Report 22116007 (Version 2)
Quarter: 2023Q2

REPORT INFORMATION
  Report Type: Spontaneous
  Country: US (occurrence: US)
  Receive Date: 20230320
  Receipt Date: 20230620
  Transmission Date: 20230722
  Serious: Yes (Other)
  Sender: FDA-Public Use
  Company Number: US-PFIZER INC-202300114446

PATIENT
  Age: 51 Year
  Sex: Female

DRUGS (2)
  1. IBRANCE [Suspect]
     Active Substance: PALBOCICLIB
     Dosage: 100 MG, CYCLIC (TAKE 1 TABLET DAILY ON DAYS 1 THROUGH 21 OF EACH 28 DAYS CYCLE)
     Dates: start: 20220922
  2. IBRANCE [Suspect]
     Active Substance: PALBOCICLIB
     Dosage: 75 MG, CYCLIC (14 DAYS ON AND 14 DAYS OFF OF A 28-DAY CYCLE)

REACTIONS (5)
  - Hysterectomy [Recovered/Resolved]
  - Full blood count abnormal [Unknown]
  - Pain [Unknown]
  - Respiratory syncytial virus infection [Recovered/Resolved]
  - Off label use [Unknown]

NARRATIVE: CASE EVENT DATE: 20220701
